FAERS Safety Report 9034473 (Version 2)
Quarter: 2013Q1

REPORT INFORMATION
  Report Type: Spontaneous
  Country: US (occurrence: None)
  Receive Date: 20130115
  Receipt Date: 20130212
  Transmission Date: 20140127
  Serious: Yes (Hospitalization)
  Sender: FDA-Public Use
  Company Number: JPI-P-025532

PATIENT
  Age: 42 Year
  Sex: Female

DRUGS (1)
  1. XYREM (500 MILLIGRAM/MILLILITERS, SOLUTION) (SODIUM OXYBATE) [Suspect]
     Indication: FIBROMYALGIA
     Dosage: 4.5 GM (2.25 GM, 2 IN 1 D)
     Route: 048
     Dates: start: 20070209

REACTIONS (15)
  - Pregnancy [None]
  - Insomnia [None]
  - Back pain [None]
  - Libido increased [None]
  - Euphoric mood [None]
  - Restless legs syndrome [None]
  - Abnormal dreams [None]
  - Snoring [None]
  - Fatigue [None]
  - Dyspnoea [None]
  - Tremor [None]
  - Hypertension [None]
  - Initial insomnia [None]
  - Pre-eclampsia [None]
  - Exposure during pregnancy [None]
